FAERS Safety Report 9849444 (Version 1)
Quarter: 2014Q1

REPORT INFORMATION
  Report Type: Spontaneous
  Country: US (occurrence: None)
  Receive Date: 20140124
  Receipt Date: 20140124
  Transmission Date: 20141002
  Serious: Yes (Other)
  Sender: FDA-Public Use
  Company Number: None

PATIENT
  Age: 48 Year
  Sex: Female
  Weight: 69.4 kg

DRUGS (4)
  1. ARESTIN [Suspect]
     Indication: GINGIVAL PAIN
     Dosage: 1 INJECTION?TIME RELEASED, MICROSPHERES?INJECTED IN GUMS, IN MOUTH
     Dates: start: 20131231
  2. MULTI-VITAMIN [Concomitant]
  3. FISH OIL [Concomitant]
  4. B-COMPLEX [Concomitant]

REACTIONS (2)
  - Diarrhoea [None]
  - Abdominal discomfort [None]
